FAERS Safety Report 8412065-0 (Version None)
Quarter: 2012Q2

REPORT INFORMATION
  Report Type: 
  Country: None (occurrence: None)
  Receive Date: 20120605
  Receipt Date: 20120524
  Transmission Date: 20120825
  Serious: Yes (Hospitalization, Other)
  Sender: FDA-Public Use
  Company Number: US-BAYER-2011-123696

PATIENT
  Age: 78 Year
  Sex: Female

DRUGS (4)
  1. ASPIRIN [Suspect]
     Indication: ILL-DEFINED DISORDER
     Dosage: UNK
  2. RIVAROXABAN [Interacting]
     Indication: CEREBROVASCULAR ACCIDENT PROPHYLAXIS
     Dosage: 15 MG, QD
     Route: 048
     Dates: end: 20120101
  3. RIVAROXABAN [Interacting]
     Indication: ATRIAL FIBRILLATION
     Dosage: UNK MG, UNK
     Route: 048
     Dates: end: 20111219
  4. CLOPIDOGREL [Interacting]
     Indication: ILL-DEFINED DISORDER

REACTIONS (3)
  - CEREBROVASCULAR ACCIDENT [None]
  - HAEMORRHAGE [None]
  - PHARYNGEAL HAEMORRHAGE [None]
